FAERS Safety Report 20855753 (Version 1)
Quarter: 2022Q2

REPORT INFORMATION
  Report Type: Spontaneous
  Country: NL (occurrence: None)
  Receive Date: 20220520
  Receipt Date: 20220520
  Transmission Date: 20220721
  Serious: Yes (Hospitalization)
  Sender: FDA-Public Use
  Company Number: None

PATIENT
  Age: 37 Year
  Sex: Male
  Weight: 75 kg

DRUGS (8)
  1. LEUCOVORIN CALCIUM [Suspect]
     Active Substance: LEUCOVORIN CALCIUM
     Indication: Colon cancer metastatic
     Dosage: 5-FU CONTINUOUS VIA PICC-LIN, FOLINIC ACID AND OXALIPLATINE CURE EVERY 2 WEEKS ,
     Dates: start: 20220510, end: 20220510
  2. OXALIPLATIN [Suspect]
     Active Substance: OXALIPLATIN
     Indication: Colon cancer metastatic
     Dosage: 5-FU CONTINUOUS VIA PICC-LINE, FOLINIC ACID AND OXALIPLATINE CURE EVERY 2 WEEKS. ,
     Dates: start: 20220510, end: 20220510
  3. FLUOROURACIL [Suspect]
     Active Substance: FLUOROURACIL
     Indication: Colon cancer metastatic
     Dosage: 5-FU CONTINUOUS VIA PICC-LINE, FOLINIC ACID AND OXALIPLATINE CURE EVERY 2 WEEKS. ,
     Dates: start: 20220510, end: 20220510
  4. DILTIAZEM [Concomitant]
     Active Substance: DILTIAZEM
     Indication: Product used for unknown indication
     Dosage: TABLET WITH REGULATED RELEASE, 120 MG (MILLIGRAM)
  5. HERBALS\PLANTAGO OVATA LEAF [Concomitant]
     Active Substance: HERBALS\PLANTAGO OVATA LEAF
     Indication: Product used for unknown indication
     Dosage: SACHET (GRANULATE), 3,25 G (GRAM)
  6. ISOSORBIDE MONONITRATE [Concomitant]
     Active Substance: ISOSORBIDE MONONITRATE
     Indication: Product used for unknown indication
     Dosage: CAPSULE WITH REGULATED RELEASE, 25 MG (MILLIGRAM)
  7. BISACODYL [Concomitant]
     Active Substance: BISACODYL
     Indication: Product used for unknown indication
     Dosage: GASTRO-RESISTANT TABLET, 5 MG (MILLIGRAM)
  8. ISOSORBIDE MONONITRATE [Concomitant]
     Active Substance: ISOSORBIDE MONONITRATE
     Indication: Product used for unknown indication
     Dosage: CAPSULE WITH REGULATED RELEASE, 50 MG (MILLIGRAM)

REACTIONS (1)
  - Arteriospasm coronary [Recovered/Resolved]

NARRATIVE: CASE EVENT DATE: 20220510
